FAERS Safety Report 10275789 (Version 1)
Quarter: 2014Q3

REPORT INFORMATION
  Report Type: Report from Study
  Country: JP (occurrence: JP)
  Receive Date: 20140703
  Receipt Date: 20140703
  Transmission Date: 20150326
  Serious: Yes (Life-Threatening, Other)
  Sender: FDA-Public Use
  Company Number: JP-AMGEN INC.-JPNCT2014049519

PATIENT
  Age: 83 Year
  Sex: Male
  Weight: 58 kg

DRUGS (18)
  1. SODIUM BICARBONATE. [Concomitant]
     Active Substance: SODIUM BICARBONATE
     Indication: NEPHROSCLEROSIS
     Dosage: UNK
     Route: 048
  2. FERROMIA [Concomitant]
     Active Substance: FERROUS CITRATE
     Indication: NEPHROSCLEROSIS
     Dosage: UNK
     Route: 048
  3. FLUITRAN [Concomitant]
     Active Substance: TRICHLORMETHIAZIDE
     Indication: NEPHROSCLEROSIS
     Dosage: UNK
     Route: 048
  4. TANATRIL [Concomitant]
     Active Substance: IMIDAPRIL
     Indication: NEPHROSCLEROSIS
     Dosage: UNK
     Route: 048
  5. PLETAAL [Concomitant]
     Active Substance: CILOSTAZOL
     Dosage: UNK
     Route: 048
  6. BIOFERMIN                          /01617201/ [Concomitant]
     Active Substance: BACILLUS SUBTILIS\LACTOBACILLUS ACIDOPHILUS\STREPTOCOCCUS FAECAIS
     Dosage: UNK
     Route: 048
  7. NORVASC [Concomitant]
     Active Substance: AMLODIPINE BESYLATE
     Indication: NEPHROSCLEROSIS
     Dosage: UNK
     Route: 048
  8. IRBETAN [Concomitant]
     Active Substance: IRBESARTAN
     Indication: NEPHROSCLEROSIS
     Dosage: UNK
     Route: 048
  9. ARGAMATE [Concomitant]
     Active Substance: POLYSTYRENE
     Indication: NEPHROSCLEROSIS
     Dosage: UNK
     Route: 048
  10. JUSO [Concomitant]
     Indication: NEPHROSCLEROSIS
     Dosage: UNK
     Route: 048
  11. CASODEX [Concomitant]
     Active Substance: BICALUTAMIDE
     Dosage: UNK
     Route: 048
  12. IRRIBOW [Concomitant]
     Active Substance: RAMOSETRON HYDROCHLORIDE
     Dosage: UNK
     Route: 048
  13. AMLODIPINE [Concomitant]
     Active Substance: AMLODIPINE BESYLATE
     Indication: NEPHROSCLEROSIS
     Dosage: UNK
     Route: 048
  14. TAKEPRON [Concomitant]
     Active Substance: LANSOPRAZOLE
     Dosage: UNK
     Route: 048
  15. OXYCONTIN [Concomitant]
     Active Substance: OXYCODONE HYDROCHLORIDE
     Indication: PAIN
     Dosage: UNK
     Route: 048
  16. DARBEPOETIN ALFA [Suspect]
     Active Substance: DARBEPOETIN ALFA
     Indication: NEPHROGENIC ANAEMIA
     Dosage: 40 MUG, QD
     Route: 058
     Dates: start: 20110824, end: 20130814
  17. DIART [Concomitant]
     Active Substance: AZOSEMIDE
     Indication: NEPHROSCLEROSIS
     Dosage: UNK
     Route: 048
  18. ALBUMIN TANNATE [Concomitant]
     Active Substance: ALBUMIN BOVINE\TANNIC ACID
     Dosage: UNK
     Route: 048

REACTIONS (4)
  - Prostate cancer [Recovered/Resolved]
  - Constipation [Not Recovered/Not Resolved]
  - Rectal cancer [Not Recovered/Not Resolved]
  - Haematochezia [Recovered/Resolved]

NARRATIVE: CASE EVENT DATE: 20120210
